FAERS Safety Report 10408876 (Version 1)
Quarter: 2014Q1

REPORT INFORMATION
  Report Type: Spontaneous
  Country: US (occurrence: None)
  Receive Date: 20130606
  Receipt Date: 20130606
  Transmission Date: 20141002
  Serious: Yes (Hospitalization)
  Sender: FDA-Public Use
  Company Number: 36558K

PATIENT
  Age: 47 Year
  Sex: Male

DRUGS (1)
  1. GLASSIA [Suspect]
     Dosage: UNK, BIWEEKLY, IV
     Route: 042

REACTIONS (2)
  - Oropharyngeal pain [None]
  - Cough [None]
